FAERS Safety Report 9767615 (Version 1)
Quarter: 2013Q4

REPORT INFORMATION
  Report Type: Spontaneous
  Country: US (occurrence: US)
  Receive Date: 20131217
  Receipt Date: 20131217
  Transmission Date: 20140711
  Serious: No
  Sender: FDA-Public Use
  Company Number: US-B.I. PHARMACEUTICALS,INC./RIDGEFIELD-2013-BI-40955BP

PATIENT
  Age: 59 Year
  Sex: Female

DRUGS (3)
  1. COMBIVENT [Suspect]
     Indication: CHRONIC OBSTRUCTIVE PULMONARY DISEASE
     Dosage: FORMULATION: MDI
     Route: 055
  2. SPIRIVA [Concomitant]
  3. DUONEB [Concomitant]

REACTIONS (3)
  - Tremor [Unknown]
  - Pulmonary congestion [Unknown]
  - Somnolence [Unknown]
